FAERS Safety Report 8085536-7 (Version None)
Quarter: 2012Q1

REPORT INFORMATION
  Report Type: 
  Country: None (occurrence: None)
  Receive Date: 20120128
  Receipt Date: 20110412
  Transmission Date: 20120608
  Serious: No
  Sender: FDA-Public Use
  Company Number: US-ABBOTT-11P-163-0713380-00

PATIENT
  Age: 15 Year
  Sex: Male

DRUGS (6)
  1. MERCAPTOPURINE [Concomitant]
     Indication: CROHN'S DISEASE
  2. OMEPRAZOLE [Concomitant]
     Indication: CROHN'S DISEASE
  3. FOLIC ACID [Concomitant]
     Indication: VITAMIN SUPPLEMENTATION
  4. PENTASA [Concomitant]
     Indication: CROHN'S DISEASE
  5. IRON [Concomitant]
     Indication: MINERAL SUPPLEMENTATION
  6. HUMIRA [Suspect]
     Indication: CROHN'S DISEASE
     Dates: start: 20101101

REACTIONS (5)
  - WRONG TECHNIQUE IN DRUG USAGE PROCESS [None]
  - INCORRECT DOSE ADMINISTERED [None]
  - INJECTION SITE PAIN [None]
  - INJECTION SITE HAEMATOMA [None]
  - INJECTION SITE HAEMORRHAGE [None]
